FAERS Safety Report 8938415 (Version 1)
Quarter: 2012Q4

REPORT INFORMATION
  Report Type: Spontaneous
  Country: US (occurrence: None)
  Receive Date: 20121128
  Receipt Date: 20121128
  Transmission Date: 20130627
  Serious: Yes (Hospitalization)
  Sender: FDA-Public Use
  Company Number: None

PATIENT
  Age: 89 Year
  Sex: Female
  Weight: 43.4 kg

DRUGS (14)
  1. COUMADIN [Suspect]
     Indication: AFIB
     Dosage: CHRONIC
3MG   TTHSS  PO
     Route: 048
  2. COUMADIN [Suspect]
     Indication: AFIB
     Dosage: CHRONIC
4.5MG  MWF  PO
     Route: 048
  3. ATENOLOL [Concomitant]
  4. LIPITOR [Concomitant]
  5. ADVAIR DISKUS [Concomitant]
  6. CARDIA XT [Concomitant]
  7. OXYCODONE [Concomitant]
  8. SPIRIVA [Concomitant]
  9. ZYRTEC [Concomitant]
  10. SENNA [Concomitant]
  11. DURAGESIC [Concomitant]
  12. ENULOSE [Concomitant]
  13. LIDODERM [Concomitant]
  14. BISACODY [Concomitant]

REACTIONS (4)
  - Rectal haemorrhage [None]
  - International normalised ratio increased [None]
  - Coagulopathy [None]
  - Incorrect dose administered [None]
